FAERS Safety Report 10692223 (Version 1)
Quarter: 2015Q1

REPORT INFORMATION
  Report Type: Spontaneous
  Country: US (occurrence: US)
  Receive Date: 20150106
  Receipt Date: 20150106
  Transmission Date: 20150720
  Serious: Yes (Hospitalization, Other)
  Sender: FDA-Public Use
  Company Number: US-AMGEN-USASP2014102572

PATIENT
  Age: 15 Year
  Sex: Female

DRUGS (2)
  1. ENBREL [Suspect]
     Active Substance: ETANERCEPT
     Indication: JUVENILE IDIOPATHIC ARTHRITIS
     Dosage: 50 MG, QWK
     Route: 065
     Dates: start: 20120328, end: 20141214
  2. METHOTREXATE [Concomitant]
     Active Substance: METHOTREXATE
     Dosage: 0.5 ML, QWK
     Route: 058
     Dates: start: 201408

REACTIONS (4)
  - Tonsillar inflammation [Not Recovered/Not Resolved]
  - Abdominal pain [Recovered/Resolved]
  - Purulent discharge [Not Recovered/Not Resolved]
  - Cat scratch disease [Recovered/Resolved]

NARRATIVE: CASE EVENT DATE: 201304
